FAERS Safety Report 6708211-7 (Version None)
Quarter: 2010Q2

REPORT INFORMATION
  Report Type: 
  Country: None (occurrence: None)
  Receive Date: 20100503
  Receipt Date: 20090723
  Transmission Date: 20101027
  Serious: No
  Sender: FDA-Public Use
  Company Number: US-ASTRAZENECA-2009SE05990

PATIENT
  Sex: Female
  Weight: 54.4 kg

DRUGS (4)
  1. NEXIUM [Suspect]
     Indication: GASTROOESOPHAGEAL REFLUX DISEASE
     Route: 048
  2. ZANTAC [Concomitant]
  3. ASTEPRO [Concomitant]
  4. NASONEX [Concomitant]

REACTIONS (3)
  - BURNING SENSATION [None]
  - DRUG INEFFECTIVE [None]
  - THROAT IRRITATION [None]
